FAERS Safety Report 7552075-9 (Version None)
Quarter: 2011Q2

REPORT INFORMATION
  Report Type: 
  Country: None (occurrence: None)
  Receive Date: 20110609
  Receipt Date: 20110525
  Transmission Date: 20111010
  Serious: Yes (Hospitalization)
  Sender: FDA-Public Use
  Company Number: AUR-APL-2011-01906

PATIENT
  Age: 36 Year
  Sex: Female

DRUGS (7)
  1. PHENOXYMETHYL PENICILLIN [Suspect]
     Indication: PAIN
     Dosage: 250MG-PRN-ORAL
     Route: 048
  2. LEVETIRACETAM [Concomitant]
  3. AMOXICILLIN [Suspect]
     Indication: TOOTH ABSCESS
     Dosage: 500MG-TID-ORAL
     Route: 048
     Dates: start: 20110504
  4. DICLOFENAC SODIUM [Concomitant]
  5. CHLORPHENIRAMINE MALEATE [Concomitant]
  6. IBUPROFEN [Concomitant]
  7. ACETAMINOPHEN [Concomitant]

REACTIONS (5)
  - TOOTHACHE [None]
  - COLITIS [None]
  - PAIN [None]
  - HYPOXIA [None]
  - HYPOKALAEMIA [None]
